FAERS Safety Report 13652835 (Version 1)
Quarter: 2017Q2

REPORT INFORMATION
  Report Type: Spontaneous
  Country: US (occurrence: US)
  Receive Date: 20170614
  Receipt Date: 20170614
  Transmission Date: 20170830
  Serious: No
  Sender: FDA-Public Use
  Company Number: US-ROCHE-1426418

PATIENT
  Sex: Female

DRUGS (2)
  1. XELODA [Suspect]
     Active Substance: CAPECITABINE
     Indication: COLON CANCER
     Dosage: 500 MG 2 TABLETS TWICE A DAY FOR SIX WEEKS
     Route: 065
  2. XELODA [Suspect]
     Active Substance: CAPECITABINE
     Dosage: 250 MG TABLET TWICE A DAY FOR SIX WEEKS
     Route: 065

REACTIONS (2)
  - Neoplasm [Unknown]
  - Skin discolouration [Unknown]
